FAERS Safety Report 7799119-7 (Version None)
Quarter: 2011Q4

REPORT INFORMATION
  Report Type: 
  Country: None (occurrence: None)
  Receive Date: 20111006
  Receipt Date: 20110930
  Transmission Date: 20120403
  Serious: Yes (Hospitalization, Other)
  Sender: FDA-Public Use
  Company Number: DE-PFIZER INC-2011221083

PATIENT
  Age: 44 Year
  Sex: Female
  Weight: 61 kg

DRUGS (1)
  1. RELPAX [Suspect]
     Indication: MIGRAINE
     Dosage: 40 MG ONCE UNTIL TWICE WEEKLY
     Route: 048
     Dates: start: 20090101, end: 20110910

REACTIONS (3)
  - COLITIS [None]
  - COLITIS ISCHAEMIC [None]
  - ENTEROCOLITIS HAEMORRHAGIC [None]
